FAERS Safety Report 4657821-X (Version None)
Quarter: 2005Q2

REPORT INFORMATION
  Report Type: 
  Country: None (occurrence: None)
  Receive Date: 20050504
  Receipt Date: 20050207
  Transmission Date: 20051028
  Serious: Yes (Other)
  Sender: FDA-Public Use
  Company Number: PHEH2005US01712

PATIENT
  Age: 81 Year
  Sex: Male

DRUGS (6)
  1. DIOVAN HCT [Suspect]
     Indication: HYPERTENSION
     Dosage: 160MG VAL/12.5 MG HCTZ, QD, ORAL
     Route: 048
     Dates: start: 20050131, end: 20050201
  2. QUINIDINE HCL [Concomitant]
  3. ALDOMET [Concomitant]
  4. DIURETICS (NO INGREDIENTS/SUBSTANCES) [Concomitant]
  5. ACETYLSALICYLIC ACID SRT [Concomitant]
  6. THYROID THERAPY (NO INGREDIENTS/SUBSTANCES) [Concomitant]

REACTIONS (2)
  - BLOOD PRESSURE DECREASED [None]
  - DRUG INEFFECTIVE [None]
